FAERS Safety Report 12246831 (Version 2)
Quarter: 2016Q2

REPORT INFORMATION
  Report Type: Spontaneous
  Country: JP (occurrence: JP)
  Receive Date: 20160407
  Receipt Date: 20160420
  Transmission Date: 20160815
  Serious: Yes (Hospitalization, Disabling)
  Sender: FDA-Public Use
  Company Number: JP-GE HEALTHCARE MEDICAL DIAGNOSTICS-OMPQ-PR-1604S-0430

PATIENT
  Age: 78 Year
  Sex: Female
  Weight: 40 kg

DRUGS (16)
  1. AMLODIPINE [Concomitant]
     Active Substance: AMLODIPINE BESYLATE
     Dates: start: 20130701
  2. CEFAMEZIN [Concomitant]
     Active Substance: CEFAZOLIN
     Dates: start: 20160119, end: 20160120
  3. CANDESARTAN [Concomitant]
     Active Substance: CANDESARTAN
     Dates: start: 20140111
  4. PLAVIX [Concomitant]
     Active Substance: CLOPIDOGREL BISULFATE
     Dates: start: 20160108
  5. NICARDIPINE [Concomitant]
     Active Substance: NICARDIPINE
     Dates: start: 20160119, end: 20160119
  6. SEVOFRANE [Concomitant]
     Active Substance: SEVOFLURANE
     Dates: start: 20160119, end: 20160119
  7. ALEVIATIN [Concomitant]
     Active Substance: PHENYTOIN SODIUM
     Dates: start: 20160120, end: 20160122
  8. OMNIPAQUE [Suspect]
     Active Substance: IOHEXOL
     Indication: ANEURYSM REPAIR
     Dosage: 5-18ML, 24 TIMES
     Route: 013
     Dates: start: 20160119, end: 20160119
  9. BAYASPIRIN [Concomitant]
     Active Substance: ASPIRIN
     Dates: start: 20160115
  10. ANHIBA [Concomitant]
     Active Substance: ACETAMINOPHEN
     Dates: start: 20160120, end: 20160120
  11. INOVAN [Concomitant]
     Active Substance: DOPAMINE HYDROCHLORIDE
     Dates: start: 20160121, end: 20160121
  12. OMNIPAQUE [Suspect]
     Active Substance: IOHEXOL
     Indication: THERAPEUTIC PROCEDURE
  13. FENTANYL. [Concomitant]
     Active Substance: FENTANYL
     Dates: start: 20160119, end: 20160119
  14. ESLAX [Concomitant]
     Active Substance: ROCURONIUM BROMIDE
     Dates: start: 20160119, end: 20160119
  15. PROPOFOL. [Concomitant]
     Active Substance: PROPOFOL
     Dates: start: 20160119, end: 20160119
  16. EFFORTIL [Concomitant]
     Active Substance: ETILEFRINE HYDROCHLORIDE
     Dates: start: 20160119, end: 20160119

REACTIONS (1)
  - Contrast encephalopathy [Recovered/Resolved]

NARRATIVE: CASE EVENT DATE: 20160119
